FAERS Safety Report 5828036-4 (Version None)
Quarter: 2008Q3

REPORT INFORMATION
  Report Type: 
  Country: None (occurrence: None)
  Receive Date: 20080730
  Receipt Date: 20070823
  Transmission Date: 20090109
  Serious: No
  Sender: FDA-Public Use
  Company Number: A0676039A

PATIENT
  Age: 79 Year
  Sex: Male

DRUGS (3)
  1. RANITIDINE HCL [Suspect]
     Dosage: 300MG PER DAY
     Route: 048
     Dates: start: 20070818
  2. ATACAND [Concomitant]
  3. ALLOPURINOL [Concomitant]

REACTIONS (1)
  - CONSTIPATION [None]
